FAERS Safety Report 5365718-5 (Version None)
Quarter: 2007Q2

REPORT INFORMATION
  Report Type: 
  Country: None (occurrence: None)
  Receive Date: 20070621
  Receipt Date: 20070619
  Transmission Date: 20071010
  Serious: Yes (Other)
  Sender: FDA-Public Use
  Company Number: US-ABBOTT-07P-163-0370541-00

PATIENT
  Age: 9 Year
  Sex: Male
  Weight: 24.3 kg

DRUGS (6)
  1. LOPINAVIR/RITONAVIR [Suspect]
     Indication: HIV INFECTION CDC CATEGORY A1
     Dosage: 216/54 MG (230/57.5 MG/M2) TWICE DAILY(230/57.5 MG/M**2 ) TWICE DAILY
  2. FLUTICASONE PROPIONATE [Interacting]
     Indication: ASTHMA
  3. MOMETASONE FUROATE [Interacting]
     Indication: RHINITIS ALLERGIC
     Route: 045
  4. DIDANOSINE [Concomitant]
     Indication: HIV INFECTION CDC CATEGORY A1
     Dosage: 105 MG (120 MG/M2) TWICE DAILY
  5. LAMIVUDINE [Concomitant]
     Indication: HIV INFECTION CDC CATEGORY A1
     Dosage: 95 MG (4MG/KG) TWICE DAILY
  6. MONTELUKAST SODIUM [Concomitant]
     Indication: ASTHMA

REACTIONS (2)
  - CUSHING'S SYNDROME [None]
  - DRUG INTERACTION [None]
